FAERS Safety Report 6257488-3 (Version None)
Quarter: 2009Q3

REPORT INFORMATION
  Report Type: 
  Country: None (occurrence: None)
  Receive Date: 20090706
  Receipt Date: 20090624
  Transmission Date: 20100115
  Serious: Yes (Other)
  Sender: FDA-Public Use
  Company Number: US-ELI_LILLY_AND_COMPANY-US200906006039

PATIENT
  Sex: Male
  Weight: 106.94 kg

DRUGS (15)
  1. BYETTA [Suspect]
     Indication: TYPE 2 DIABETES MELLITUS
     Dosage: 5 UG, 2/D
     Route: 058
     Dates: start: 20051104, end: 20051201
  2. BYETTA [Suspect]
     Dosage: 10 UG, 2/D
     Route: 058
     Dates: start: 20051201
  3. GLUCOPHAGE [Concomitant]
     Indication: TYPE 2 DIABETES MELLITUS
     Dosage: 2000 MG, DAILY (1/D)
     Route: 048
  4. AMARYL [Concomitant]
     Indication: TYPE 2 DIABETES MELLITUS
     Dosage: 4 MG, DAILY (1/D)
     Route: 048
  5. LANTUS [Concomitant]
     Indication: TYPE 2 DIABETES MELLITUS
     Dosage: 50 U, EACH MORNING
     Route: 058
  6. AGGRENOX [Concomitant]
     Dosage: UNK, DAILY (1/D)
     Route: 048
  7. DIOVAN [Concomitant]
     Dosage: 160 MG, 2/D
     Route: 048
  8. LISINOPRIL [Concomitant]
     Dosage: 60 MG, DAILY (1/D)
     Route: 048
  9. CRESTOR /01588602/ [Concomitant]
     Dosage: 5 MG, DAILY (1/D)
     Route: 048
  10. SPIRONOLACTONE [Concomitant]
     Dosage: 25 MG, DAILY (1/D)
     Route: 048
  11. MULTI-VITAMINS [Concomitant]
  12. ASCORBIC ACID [Concomitant]
     Dosage: 1000 MG, DAILY (1/D)
  13. VITAMIN E [Concomitant]
     Dosage: 400 U, DAILY (1/D)
  14. GARLIC [Concomitant]
     Dosage: 1000 MG, DAILY (1/D)
     Route: 048
  15. CHROMIUM [Concomitant]
     Dosage: 200 MG, DAILY (1/D)

REACTIONS (3)
  - INSULIN RESISTANCE [None]
  - OFF LABEL USE [None]
  - PANCREATIC CARCINOMA [None]
